FAERS Safety Report 10748152 (Version 1)
Quarter: 2015Q1

REPORT INFORMATION
  Report Type: Spontaneous
  Country: GB (occurrence: GB)
  Receive Date: 20150129
  Receipt Date: 20150129
  Transmission Date: 20150721
  Serious: Yes (Hospitalization)
  Sender: FDA-Public Use
  Company Number: GB-ASTRAZENECA-2015SE06521

PATIENT
  Age: 48 Year
  Sex: Female

DRUGS (1)
  1. ANASTROZOLE. [Suspect]
     Active Substance: ANASTROZOLE
     Indication: METASTASES TO BONE
     Route: 048
     Dates: start: 201305

REACTIONS (3)
  - Hepatic steatosis [Unknown]
  - Jaundice [Unknown]
  - Drug-induced liver injury [Unknown]
